FAERS Safety Report 18495838 (Version 1)
Quarter: 2020Q4

REPORT INFORMATION
  Report Type: Spontaneous
  Country: US (occurrence: US)
  Receive Date: 20201112
  Receipt Date: 20201112
  Transmission Date: 20210114
  Serious: Yes (Other)
  Sender: FDA-Public Use
  Company Number: None

PATIENT
  Age: 84 Year
  Sex: Female
  Weight: 65.32 kg

DRUGS (10)
  1. MARINOL [Concomitant]
     Active Substance: DRONABINOL
  2. MULTIVITAMIN [Concomitant]
     Active Substance: VITAMINS
  3. OXYCODONE [Concomitant]
     Active Substance: OXYCODONE
  4. XELODA [Suspect]
     Active Substance: CAPECITABINE
     Indication: NEOPLASM MALIGNANT
     Route: 048
     Dates: start: 20201102, end: 20201111
  5. DILFUCAN [Concomitant]
  6. LACTOSE [Concomitant]
     Active Substance: LACTOSE
  7. PERCOCET [Concomitant]
     Active Substance: ACETAMINOPHEN\OXYCODONE HYDROCHLORIDE
  8. COLACE [Concomitant]
     Active Substance: DOCUSATE SODIUM
  9. NIFEDIPINE. [Concomitant]
     Active Substance: NIFEDIPINE
  10. ZOCOR [Concomitant]
     Active Substance: SIMVASTATIN

REACTIONS (1)
  - Hospice care [None]

NARRATIVE: CASE EVENT DATE: 20201112
